FAERS Safety Report 6628838-0 (Version None)
Quarter: 2010Q1

REPORT INFORMATION
  Report Type: 
  Country: None (occurrence: None)
  Receive Date: 20100311
  Receipt Date: 20100302
  Transmission Date: 20100710
  Serious: Yes (Other)
  Sender: FDA-Public Use
  Company Number: JP-PFIZER INC-2010027698

PATIENT
  Age: 72 Year
  Sex: Male
  Weight: 53 kg

DRUGS (4)
  1. SUNITINIB MALATE [Suspect]
     Indication: RENAL CELL CARCINOMA
     Dosage: 50 MG, 1X/DAY
     Route: 048
     Dates: start: 20090806
  2. INTEBAN [Concomitant]
     Dates: start: 20090806, end: 20090903
  3. ACETAMINOPHEN [Concomitant]
     Dates: start: 20090807, end: 20090903
  4. AZUNOL #1 [Concomitant]
     Dates: start: 20090820, end: 20090903

REACTIONS (1)
  - BONE MARROW FAILURE [None]
